FAERS Safety Report 8448837-6 (Version None)
Quarter: 2012Q2

REPORT INFORMATION
  Report Type: 
  Country: None (occurrence: None)
  Receive Date: 20120619
  Receipt Date: 20120606
  Transmission Date: 20120825
  Serious: Yes (Other)
  Sender: FDA-Public Use
  Company Number: DE-CELGENEUS-062-C5013-12051302

PATIENT
  Age: 73 Year
  Sex: Male
  Weight: 81 kg

DRUGS (5)
  1. DEXAMETHASONE [Suspect]
     Route: 065
     Dates: end: 20110620
  2. ASPIRIN [Concomitant]
     Indication: THROMBOSIS PROPHYLAXIS
     Dosage: 100 MILLIGRAM
     Route: 048
     Dates: start: 20110528
  3. LENALIDOMIDE [Suspect]
     Indication: MULTIPLE MYELOMA
     Dosage: 25
     Route: 048
     Dates: start: 20101110
  4. LENALIDOMIDE [Suspect]
     Route: 048
     Dates: end: 20120320
  5. DEXAMETHASONE [Suspect]
     Indication: MULTIPLE MYELOMA
     Dosage: 40 MILLIGRAM
     Route: 065
     Dates: start: 20101110

REACTIONS (3)
  - BASAL CELL CARCINOMA [None]
  - GRAND MAL CONVULSION [None]
  - HYPOGLYCAEMIA [None]
